FAERS Safety Report 20132721 (Version 2)
Quarter: 2021Q4

REPORT INFORMATION
  Report Type: Report from Study
  Country: IE (occurrence: IE)
  Receive Date: 20211130
  Receipt Date: 20211202
  Transmission Date: 20220303
  Serious: No
  Sender: FDA-Public Use
  Company Number: IE-MYLANLABS-2021M1088130

PATIENT
  Sex: Female

DRUGS (2)
  1. HULIO [Suspect]
     Active Substance: ADALIMUMAB-FKJP
     Indication: Colitis ulcerative
     Dosage: 40 MILLIGRAM, QW
  2. HULIO [Suspect]
     Active Substance: ADALIMUMAB-FKJP
     Indication: Arthritis

REACTIONS (1)
  - Off label use [Unknown]
